FAERS Safety Report 24738245 (Version 2)
Quarter: 2025Q1

REPORT INFORMATION
  Report Type: Spontaneous
  Country: US (occurrence: US)
  Receive Date: 20241216
  Receipt Date: 20250129
  Transmission Date: 20250408
  Serious: Yes (Other)
  Sender: AMGEN
  Company Number: US-AMGEN-USASP2024243249

PATIENT
  Age: 62 Year
  Sex: Female

DRUGS (1)
  1. TEPEZZA [Suspect]
     Active Substance: TEPROTUMUMAB-TRBW
     Indication: Product used for unknown indication
     Route: 065
     Dates: start: 20220301, end: 20220901

REACTIONS (6)
  - Eye operation [Unknown]
  - Asthenia [Unknown]
  - Diarrhoea [Unknown]
  - Dry eye [Recovered/Resolved]
  - Eyelid retraction [Unknown]
  - Illness [Unknown]

NARRATIVE: CASE EVENT DATE: 20220101
